FAERS Safety Report 13142326 (Version 3)
Quarter: 2017Q2

REPORT INFORMATION
  Report Type: Spontaneous
  Country: US (occurrence: US)
  Receive Date: 20170123
  Receipt Date: 20170614
  Transmission Date: 20170830
  Serious: No
  Sender: FDA-Public Use
  Company Number: US-ACTELION-A-NJ2017-148795

PATIENT
  Age: 75 Year
  Sex: Female

DRUGS (19)
  1. FLOVENT [Concomitant]
     Active Substance: FLUTICASONE PROPIONATE
  2. ONDANSETRON [Concomitant]
     Active Substance: ONDANSETRON
  3. NORCO [Concomitant]
     Active Substance: ACETAMINOPHEN\HYDROCODONE BITARTRATE
  4. LACTULOSE. [Concomitant]
     Active Substance: LACTULOSE
  5. AMBRISENTAN [Suspect]
     Active Substance: AMBRISENTAN
     Indication: PULMONARY ARTERIAL HYPERTENSION
     Dosage: 10 MG, QD
     Route: 065
  6. AMBRISENTAN [Suspect]
     Active Substance: AMBRISENTAN
     Dosage: 5 MG, QD
     Route: 065
     Dates: start: 20140721
  7. ADCIRCA [Concomitant]
     Active Substance: TADALAFIL
  8. SODIUM POLYSTYRENE SULFONATE. [Concomitant]
     Active Substance: SODIUM POLYSTYRENE SULFONATE
  9. ORENITRAM [Suspect]
     Active Substance: TREPROSTINIL
     Dosage: 0.75 MG, TID
     Route: 048
     Dates: start: 20161116, end: 20161117
  10. ORENITRAM [Suspect]
     Active Substance: TREPROSTINIL
     Dosage: 0.75 MG, TID
     Route: 048
     Dates: start: 20170110
  11. RENVELA [Concomitant]
     Active Substance: SEVELAMER CARBONATE
  12. HECTOROL [Concomitant]
     Active Substance: DOXERCALCIFEROL
  13. UPTRAVI [Suspect]
     Active Substance: SELEXIPAG
     Dosage: 800 MCG, BID
     Route: 048
  14. ASPIRIN. [Concomitant]
     Active Substance: ASPIRIN
  15. UPTRAVI [Suspect]
     Active Substance: SELEXIPAG
     Indication: PULMONARY ARTERIAL HYPERTENSION
     Dosage: 600 MCG, BID
     Route: 048
  16. ORENITRAM [Suspect]
     Active Substance: TREPROSTINIL
     Indication: PULMONARY HYPERTENSION
     Dosage: 1.875 MG, TID
     Route: 048
     Dates: start: 20160902
  17. ORENITRAM [Suspect]
     Active Substance: TREPROSTINIL
     Dosage: 0.625 MG, TID
     Route: 048
     Dates: start: 20161118
  18. AMLODIPINE [Concomitant]
     Active Substance: AMLODIPINE BESYLATE
  19. COLACE [Concomitant]
     Active Substance: DOCUSATE SODIUM

REACTIONS (10)
  - Viral upper respiratory tract infection [Unknown]
  - Asthenia [Unknown]
  - Contusion [Unknown]
  - Muscular weakness [Unknown]
  - Malaise [Unknown]
  - Faeces discoloured [Unknown]
  - Headache [Recovered/Resolved]
  - Diarrhoea [Unknown]
  - Fatigue [Unknown]
  - Laryngitis [Unknown]

NARRATIVE: CASE EVENT DATE: 20161101
